FAERS Safety Report 10720674 (Version 2)
Quarter: 2015Q1

REPORT INFORMATION
  Report Type: Spontaneous
  Country: US (occurrence: US)
  Receive Date: 20150119
  Receipt Date: 20150120
  Transmission Date: 20150721
  Serious: Yes (Other)
  Sender: FDA-Public Use
  Company Number: US-JNJFOC-20150103448

PATIENT

DRUGS (12)
  1. ONCOVIN [Suspect]
     Active Substance: VINCRISTINE SULFATE
     Indication: BURKITT^S LYMPHOMA
     Route: 065
  2. METHOTREXATE [Suspect]
     Active Substance: METHOTREXATE
     Indication: BURKITT^S LYMPHOMA
     Dosage: 8 G/M2 IN 4-HOUR INFUSION
     Route: 041
  3. CYCLOPHOSPHAMIDE. [Suspect]
     Active Substance: CYCLOPHOSPHAMIDE
     Indication: BURKITT^S LYMPHOMA
     Dosage: LOW DOSE REDUCTION PHASE
     Route: 065
  4. ACETAMINOPHEN. [Concomitant]
     Active Substance: ACETAMINOPHEN
     Indication: PREMEDICATION
     Route: 065
  5. DOXORUBICIN [Suspect]
     Active Substance: DOXORUBICIN
     Indication: BURKITT^S LYMPHOMA
     Route: 042
  6. RITUXIMAB [Suspect]
     Active Substance: RITUXIMAB
     Indication: BURKITT^S LYMPHOMA
     Route: 041
  7. RASBURICASE [Concomitant]
     Active Substance: RASBURICASE
     Indication: PROPHYLAXIS
     Route: 042
  8. DIPHENHYDRAMINE [Concomitant]
     Active Substance: DIPHENHYDRAMINE
     Indication: PREMEDICATION
     Route: 065
  9. CYCLOPHOSPHAMIDE. [Suspect]
     Active Substance: CYCLOPHOSPHAMIDE
     Indication: BURKITT^S LYMPHOMA
     Dosage: CYCLOPHOSPHAMIDE 1.5 G/M2 PER COURSE??1 AND 3 G/M2 PER COURSE 2
     Route: 065
  10. PREDNISONE. [Suspect]
     Active Substance: PREDNISONE
     Indication: BURKITT^S LYMPHOMA
     Dosage: REDUCTION PHASE
     Route: 065
  11. PREDNISONE. [Suspect]
     Active Substance: PREDNISONE
     Indication: BURKITT^S LYMPHOMA
     Route: 065
  12. ONCOVIN [Suspect]
     Active Substance: VINCRISTINE SULFATE
     Indication: BURKITT^S LYMPHOMA
     Dosage: REDUCTION PHASE
     Route: 065

REACTIONS (6)
  - Infection [Unknown]
  - Mucosal inflammation [Unknown]
  - Pain [Unknown]
  - Hyperglycaemia [Unknown]
  - Decreased appetite [Unknown]
  - Transaminases increased [Unknown]
